FAERS Safety Report 6802103-0 (Version None)
Quarter: 2010Q2

REPORT INFORMATION
  Report Type: 
  Country: None (occurrence: None)
  Receive Date: 20100629
  Receipt Date: 20070827
  Transmission Date: 20101027
  Serious: No
  Sender: FDA-Public Use
  Company Number: US-PFIZER INC-2006068419

PATIENT
  Sex: Female

DRUGS (9)
  1. SPIRONOLACTONE [Suspect]
     Indication: ADRENAL DISORDER
     Route: 065
  2. HYZAAR [Concomitant]
     Route: 065
  3. PREMARIN [Concomitant]
     Route: 065
  4. CYTOMEL [Concomitant]
     Route: 065
  5. PROLOID [Concomitant]
     Route: 065
  6. ZOLOFT [Concomitant]
     Route: 065
  7. VICOPROFEN [Concomitant]
     Route: 065
  8. VITAMIN B-12 [Concomitant]
     Route: 065
  9. NEURONTIN [Concomitant]
     Route: 065

REACTIONS (6)
  - ABDOMINAL DISCOMFORT [None]
  - DYSURIA [None]
  - HAIR GROWTH ABNORMAL [None]
  - MALAISE [None]
  - NEUROPATHY PERIPHERAL [None]
  - OEDEMA PERIPHERAL [None]
